FAERS Safety Report 6839683-5 (Version None)
Quarter: 2010Q3

REPORT INFORMATION
  Report Type: 
  Country: None (occurrence: None)
  Receive Date: 20100714
  Receipt Date: 20100702
  Transmission Date: 20110219
  Serious: Yes (Life-Threatening, Other)
  Sender: FDA-Public Use
  Company Number: GB-PFIZER INC-2010078097

PATIENT
  Age: 65 Year
  Sex: Male

DRUGS (12)
  1. PREGABALIN [Suspect]
     Indication: DIABETIC NEUROPATHY
     Dosage: 75 MG, 2X/DAY
     Route: 048
     Dates: start: 20100507, end: 20100607
  2. AMITRIPTYLINE [Concomitant]
     Dosage: UNK
     Route: 048
  3. EXENATIDE [Concomitant]
     Dosage: UNK
  4. FUROSEMIDE [Concomitant]
     Dosage: 40 MG, UNK
  5. IRBESARTAN [Concomitant]
     Dosage: 300 MG, UNK
  6. LISINOPRIL [Concomitant]
     Dosage: UNK
     Route: 048
  7. METFORMIN [Concomitant]
     Dosage: UNK
  8. RANITIDINE [Concomitant]
     Dosage: UNK
  9. SALBUTAMOL [Concomitant]
     Dosage: UNK
  10. SIMVASTATIN [Concomitant]
     Dosage: 40 MG, UNK
  11. SPIRIVA [Concomitant]
     Dosage: UNK
  12. SYMBICORT [Concomitant]
     Dosage: UNK

REACTIONS (2)
  - BLOOD CREATININE INCREASED [None]
  - RENAL IMPAIRMENT [None]
